FAERS Safety Report 22158638 (Version 1)
Quarter: 2023Q1

REPORT INFORMATION
  Report Type: Spontaneous
  Country: NO (occurrence: NO)
  Receive Date: 20230331
  Receipt Date: 20230331
  Transmission Date: 20230418
  Serious: Yes (Other)
  Sender: FDA-Public Use
  Company Number: None

PATIENT
  Age: 40 Year
  Sex: Male

DRUGS (2)
  1. TESTOSTERONE [Suspect]
     Active Substance: TESTOSTERONE
     Indication: Androgen deficiency
     Dosage: 1 INJECTION EACH THIRD MONTH
     Route: 065
  2. TESTOSTERONE [Suspect]
     Active Substance: TESTOSTERONE
     Indication: Hormone level abnormal

REACTIONS (5)
  - Thrombosis [Not Recovered/Not Resolved]
  - Splenic thrombosis [Recovered/Resolved]
  - Neovascularisation [Not Recovered/Not Resolved]
  - Splenomegaly [Not Recovered/Not Resolved]
  - Blood viscosity increased [Unknown]
